FAERS Safety Report 20308163 (Version 6)
Quarter: 2023Q2

REPORT INFORMATION
  Report Type: Spontaneous
  Country: JP (occurrence: JP)
  Receive Date: 20220107
  Receipt Date: 20230601
  Transmission Date: 20230721
  Serious: Yes (Hospitalization, Other)
  Sender: FDA-Public Use
  Company Number: JP-INSMED-2021-10323-JPAA

PATIENT
  Age: 74 Year
  Sex: Female
  Weight: 41.3 kg

DRUGS (20)
  1. ARIKAYCE [Suspect]
     Active Substance: AMIKACIN
     Indication: Mycobacterial infection
     Dosage: UNK UNK, QD
     Route: 055
     Dates: start: 20211006, end: 20211202
  2. ARIKAYCE [Suspect]
     Active Substance: AMIKACIN
     Indication: Mycobacterium avium complex infection
  3. ARIKAYCE [Suspect]
     Active Substance: AMIKACIN
     Indication: Atypical mycobacterial infection
  4. CLARITHROMYCIN [Concomitant]
     Active Substance: CLARITHROMYCIN
     Indication: Atypical mycobacterial infection
     Dosage: 800 MILLIGRAM, QD
     Route: 048
  5. CLARITHROMYCIN [Concomitant]
     Active Substance: CLARITHROMYCIN
     Indication: Mycobacterial infection
  6. CLARITHROMYCIN [Concomitant]
     Active Substance: CLARITHROMYCIN
     Indication: Mycobacterium avium complex infection
  7. SITAFLOXACIN [Concomitant]
     Active Substance: SITAFLOXACIN
     Indication: Mycobacterial infection
     Dosage: 100 MILLIGRAM, BID
     Route: 048
  8. SITAFLOXACIN [Concomitant]
     Active Substance: SITAFLOXACIN
     Indication: Mycobacterium avium complex infection
  9. SITAFLOXACIN [Concomitant]
     Active Substance: SITAFLOXACIN
     Indication: Atypical mycobacterial infection
  10. EBUTOL [Concomitant]
     Active Substance: ETHAMBUTOL HYDROCHLORIDE
     Indication: Mycobacterium avium complex infection
     Dosage: 500 MILLIGRAM, QD
     Route: 048
  11. EBUTOL [Concomitant]
     Active Substance: ETHAMBUTOL HYDROCHLORIDE
     Indication: Mycobacterial infection
  12. EBUTOL [Concomitant]
     Active Substance: ETHAMBUTOL HYDROCHLORIDE
     Indication: Atypical mycobacterial infection
  13. FAROPENEM SODIUM [Concomitant]
     Active Substance: FAROPENEM SODIUM
     Indication: Mycobacterial infection
     Dosage: 200 MILLIGRAM, TID
     Route: 048
  14. FAROPENEM SODIUM [Concomitant]
     Active Substance: FAROPENEM SODIUM
     Indication: Mycobacterium avium complex infection
  15. FAROPENEM SODIUM [Concomitant]
     Active Substance: FAROPENEM SODIUM
     Indication: Atypical mycobacterial infection
  16. AZILSARTAN KAMEDOXOMIL [Concomitant]
     Active Substance: AZILSARTAN KAMEDOXOMIL
     Indication: Hypertension
     Dosage: 40 MILLIGRAM, QD
     Route: 048
  17. MITIGLINIDE [Concomitant]
     Active Substance: MITIGLINIDE
     Indication: Diabetes mellitus
     Dosage: 10 MILLIGRAM, BID
     Route: 048
  18. LINAGLIPTIN [Concomitant]
     Active Substance: LINAGLIPTIN
     Indication: Diabetes mellitus
     Dosage: 5 MILLIGRAM, QD
     Route: 048
  19. ATORVASTATIN [Concomitant]
     Active Substance: ATORVASTATIN
     Indication: Dyslipidaemia
     Dosage: 10 MILLIGRAM, QD
     Route: 048
  20. AMLODIPINE [Concomitant]
     Active Substance: AMLODIPINE BESYLATE
     Indication: Hypertension
     Dosage: 2.5 MILLIGRAM, QD
     Route: 048

REACTIONS (1)
  - Organising pneumonia [Recovering/Resolving]

NARRATIVE: CASE EVENT DATE: 20211119
